FAERS Safety Report 9354726 (Version 1)
Quarter: 2013Q2

REPORT INFORMATION
  Report Type: Spontaneous
  Country: FR (occurrence: FR)
  Receive Date: 20130619
  Receipt Date: 20130619
  Transmission Date: 20140414
  Serious: Yes (Other)
  Sender: FDA-Public Use
  Company Number: FR-AMGEN-FRASP2013042754

PATIENT
  Age: 80 Year
  Sex: Female

DRUGS (7)
  1. ENBREL [Suspect]
     Indication: RHEUMATOID ARTHRITIS
     Dosage: 50 MG, WEEKLY
     Route: 058
     Dates: start: 201111
  2. ACLASTA [Suspect]
     Indication: OSTEOPOROSIS
     Dosage: 5 MG PER YEAR
     Route: 041
     Dates: start: 201304
  3. METOJECT [Suspect]
     Indication: RHEUMATOID ARTHRITIS
     Dosage: 10 MG/ML, WEEKLY
     Route: 058
     Dates: start: 200709
  4. DAFALGAN CODEINE [Suspect]
     Indication: RHEUMATOID ARTHRITIS
     Dosage: UNK
     Route: 048
     Dates: start: 2006
  5. SPECIAFOLDINE [Suspect]
     Indication: RHEUMATOID ARTHRITIS
     Dosage: 2 DF, WEEKLY
     Route: 048
     Dates: start: 200709
  6. UVEDOSE [Suspect]
     Dosage: UNK UNK, UNK
  7. CHONDROSULF [Suspect]
     Dosage: UNK UNK, UNK

REACTIONS (1)
  - Polyarthritis [Recovered/Resolved]
